FAERS Safety Report 17116028 (Version 1)
Quarter: 2019Q4

REPORT INFORMATION
  Report Type: Spontaneous
  Country: US (occurrence: US)
  Receive Date: 20191205
  Receipt Date: 20191205
  Transmission Date: 20200122
  Serious: No
  Sender: FDA-Public Use
  Company Number: US-TEVA-2019-US-1147755

PATIENT
  Sex: Female

DRUGS (1)
  1. CLONIDINE. [Suspect]
     Active Substance: CLONIDINE
     Indication: HYPERTENSION
     Dosage: STRENGTH: 0.3 MG/DAY; STARTED THE PRODUCT 30 YEARS AGO
     Route: 062

REACTIONS (2)
  - Drug ineffective [Unknown]
  - Blood pressure increased [Unknown]
